FAERS Safety Report 25338933 (Version 1)
Quarter: 2025Q2

REPORT INFORMATION
  Report Type: Spontaneous
  Country: AT (occurrence: AT)
  Receive Date: 20250520
  Receipt Date: 20250520
  Transmission Date: 20250717
  Serious: Yes (Other)
  Sender: AMGEN
  Company Number: AT-AMGEN-AUTSP2025096059

PATIENT
  Age: 50 Year
  Sex: Female

DRUGS (3)
  1. LUMAKRAS [Suspect]
     Active Substance: SOTORASIB
     Indication: Non-small cell lung cancer
     Dosage: 960 MILLIGRAM, QD
     Route: 065
     Dates: start: 20230909, end: 2023
  2. LUMAKRAS [Suspect]
     Active Substance: SOTORASIB
     Route: 065
     Dates: start: 2023, end: 202311
  3. LUMAKRAS [Suspect]
     Active Substance: SOTORASIB
     Route: 065
     Dates: start: 2023, end: 202503

REACTIONS (5)
  - Brachiocephalic vein thrombosis [Unknown]
  - Colitis [Unknown]
  - Non-small cell lung cancer metastatic [Unknown]
  - Arthralgia [Unknown]
  - Therapy partial responder [Unknown]

NARRATIVE: CASE EVENT DATE: 20230901
